FAERS Safety Report 8988111 (Version 2)
Quarter: 2013Q2

REPORT INFORMATION
  Report Type: Spontaneous
  Country: US (occurrence: US)
  Receive Date: 20121227
  Receipt Date: 20130401
  Transmission Date: 20140414
  Serious: No
  Sender: FDA-Public Use
  Company Number: US-PFIZER INC-2012330408

PATIENT
  Age: 89 Year
  Sex: Female
  Weight: 92.52 kg

DRUGS (2)
  1. LIPITOR [Suspect]
     Indication: BLOOD CHOLESTEROL INCREASED
     Dosage: 20 MG, DAILY
     Route: 048
  2. PROCARDIA XL [Concomitant]
     Dosage: UNK

REACTIONS (3)
  - Liver disorder [Recovering/Resolving]
  - Arthralgia [Unknown]
  - Musculoskeletal discomfort [Unknown]
